FAERS Safety Report 15256606 (Version 1)
Quarter: 2018Q3

REPORT INFORMATION
  Report Type: Spontaneous
  Country: CA (occurrence: CA)
  Receive Date: 20180808
  Receipt Date: 20180808
  Transmission Date: 20181010
  Serious: Yes (Hospitalization)
  Sender: FDA-Public Use
  Company Number: CA-BAYER-2018-143469

PATIENT
  Age: 95 Year
  Sex: Male
  Weight: 69.98 kg

DRUGS (1)
  1. AVELOX [Suspect]
     Active Substance: MOXIFLOXACIN HYDROCHLORIDE
     Indication: PNEUMONIA
     Dosage: 400 MG, QD
     Route: 048

REACTIONS (2)
  - Decreased appetite [Recovering/Resolving]
  - Delirium [Recovering/Resolving]
